FAERS Safety Report 21587285 (Version 1)
Quarter: 2022Q4

REPORT INFORMATION
  Report Type: Spontaneous
  Country: US (occurrence: US)
  Receive Date: 20221114
  Receipt Date: 20221114
  Transmission Date: 20230113
  Serious: No
  Sender: FDA-Public Use
  Company Number: US-GSK-US2022AMR161234

PATIENT
  Sex: Female

DRUGS (1)
  1. NUCALA [Suspect]
     Active Substance: MEPOLIZUMAB
     Indication: Product used for unknown indication
     Dosage: 100 MG

REACTIONS (5)
  - Wheezing [Unknown]
  - Feeling abnormal [Unknown]
  - Drug effective for unapproved indication [Unknown]
  - Product prescribing error [Unknown]
  - Product use in unapproved indication [Unknown]
